FAERS Safety Report 5128806-4 (Version None)
Quarter: 2006Q4

REPORT INFORMATION
  Report Type: 
  Country: None (occurrence: None)
  Receive Date: 20061011
  Receipt Date: 20060928
  Transmission Date: 20070319
  Serious: Yes (Death, Other)
  Sender: FDA-Public Use
  Company Number: 2006122370

PATIENT
  Sex: Male

DRUGS (4)
  1. CELEBREX [Suspect]
     Dates: start: 20040503, end: 20041024
  2. BEXTRA [Suspect]
     Dates: start: 20040327, end: 20040406
  3. BEXTRA [Suspect]
     Dates: start: 20040406, end: 20040503
  4. VIOXX [Suspect]
     Dosage: ORAL
     Route: 048
     Dates: start: 20040406, end: 20040503

REACTIONS (1)
  - MYOCARDIAL INFARCTION [None]
